FAERS Safety Report 14615853 (Version 1)
Quarter: 2018Q1

REPORT INFORMATION
  Report Type: Report from Study
  Country: CA (occurrence: CA)
  Receive Date: 20180309
  Receipt Date: 20180309
  Transmission Date: 20180509
  Serious: Yes (Death, Other)
  Sender: FDA-Public Use
  Company Number: CA-AMGEN-CANSL2018031420

PATIENT
  Age: 69 Year
  Sex: Female

DRUGS (1)
  1. NEULASTA [Suspect]
     Active Substance: PEGFILGRASTIM
     Indication: PRODUCT USED FOR UNKNOWN INDICATION
     Dosage: UNK (6MG/0.6 ML)
     Route: 065
     Dates: start: 20161228

REACTIONS (1)
  - Death [Fatal]

NARRATIVE: CASE EVENT DATE: 20180222
